FAERS Safety Report 24757292 (Version 1)
Quarter: 2024Q4

REPORT INFORMATION
  Report Type: Spontaneous
  Country: US (occurrence: US)
  Receive Date: 20241220
  Receipt Date: 20241220
  Transmission Date: 20250114
  Serious: Yes (Death)
  Sender: AMGEN
  Company Number: US-AMGEN-USASP2024247183

PATIENT

DRUGS (6)
  1. PEGFILGRASTIM [Suspect]
     Active Substance: PEGFILGRASTIM
     Indication: Chronic lymphocytic leukaemia
     Dosage: UNK, ON DAY 16 OF CYCLES 2-7,
     Route: 065
  2. PEGFILGRASTIM [Suspect]
     Active Substance: PEGFILGRASTIM
     Indication: Lymphocytic lymphoma
  3. DINACICLIB [Concomitant]
     Active Substance: DINACICLIB
     Indication: Chronic lymphocytic leukaemia
     Dosage: UNK, 2-HOUR INFUSION ON DAYS 1, 8, AND 15
     Route: 065
  4. DINACICLIB [Concomitant]
     Active Substance: DINACICLIB
     Indication: Lymphocytic leukaemia
  5. OFATUMUMAB [Concomitant]
     Active Substance: OFATUMUMAB
     Indication: Chronic lymphocytic leukaemia
     Dosage: UNK, (WEEKLY X 8, MONTHLY X 4) STARTING ON CYCLE 1 DAY 1
  6. OFATUMUMAB [Concomitant]
     Active Substance: OFATUMUMAB
     Indication: Lymphocytic leukaemia

REACTIONS (1)
  - Death [Fatal]
